FAERS Safety Report 9337267 (Version 3)
Quarter: 2013Q4

REPORT INFORMATION
  Report Type: Spontaneous
  Country: US (occurrence: US)
  Receive Date: 20130607
  Receipt Date: 20131023
  Transmission Date: 20140711
  Serious: Yes (Hospitalization, Other)
  Sender: FDA-Public Use
  Company Number: US-UCBSA-082398

PATIENT
  Age: 24 Year
  Sex: Female
  Weight: 66.22 kg

DRUGS (6)
  1. CIMZIA [Suspect]
     Indication: CROHN^S DISEASE
     Dates: start: 20120507, end: 20130701
  2. CIMZIA [Suspect]
     Indication: CROHN^S DISEASE
     Dates: start: 20130826
  3. PREDNISONE [Concomitant]
     Dosage: UNKNOWN DOSE
  4. PREDNISONE [Concomitant]
     Dosage: 15 MG PER DAY
  5. 6-MP [Concomitant]
     Dosage: UNKNOWN DOSE
  6. 6-MP [Concomitant]
     Dosage: DOSE:100 MG

REACTIONS (8)
  - Enteritis [Unknown]
  - Colitis [Unknown]
  - Colonic abscess [Unknown]
  - Perineal abscess [Not Recovered/Not Resolved]
  - Erythema of eyelid [Recovered/Resolved]
  - Upper respiratory tract infection [Not Recovered/Not Resolved]
  - Sinus disorder [Not Recovered/Not Resolved]
  - Inappropriate schedule of drug administration [Unknown]
